FAERS Safety Report 7431054-6 (Version None)
Quarter: 2011Q2

REPORT INFORMATION
  Report Type: 
  Country: None (occurrence: None)
  Receive Date: 20110421
  Receipt Date: 20110413
  Transmission Date: 20111010
  Serious: Yes (Hospitalization)
  Sender: FDA-Public Use
  Company Number: US-GILEAD-2011-0038551

PATIENT
  Age: 62 Year
  Sex: Female

DRUGS (3)
  1. TYVASO [Concomitant]
  2. ADCIRCA [Concomitant]
  3. LETAIRIS [Suspect]
     Indication: PRODUCT USED FOR UNKNOWN INDICATION
     Route: 054
     Dates: start: 20100328

REACTIONS (3)
  - EAR DISCOMFORT [None]
  - PNEUMONIA [None]
  - ATRIAL FLUTTER [None]
